FAERS Safety Report 11751686 (Version 2)
Quarter: 2015Q4

REPORT INFORMATION
  Report Type: Spontaneous
  Country: NZ (occurrence: NZ)
  Receive Date: 20151118
  Receipt Date: 20151119
  Transmission Date: 20160304
  Serious: Yes (Hospitalization, Other)
  Sender: FDA-Public Use
  Company Number: PHHY2015NZ148126

PATIENT
  Age: 56 Year
  Sex: Female
  Weight: 67 kg

DRUGS (7)
  1. RIAMET [Interacting]
     Active Substance: ARTEMETHER\LUMEFANTRINE
     Indication: PLASMODIUM MALARIAE INFECTION
     Dosage: 4 DF, BID
     Route: 065
  2. MALARONE [Interacting]
     Active Substance: ATOVAQUONE\PROGUANIL HYDROCHLORIDE
     Indication: PLASMODIUM MALARIAE INFECTION
     Dosage: 4 DF, QD
     Route: 065
  3. PRIMACIN [Interacting]
     Active Substance: PRIMAQUINE PHOSPHATE
     Dosage: 45 MG, QD
     Route: 065
  4. CHLOROQUINE. [Interacting]
     Active Substance: CHLOROQUINE
     Indication: PLASMODIUM MALARIAE INFECTION
     Dosage: 2 DF, UNK
     Route: 065
  5. DOXYCYCLINE. [Interacting]
     Active Substance: DOXYCYCLINE
     Dosage: 100 MG, QD
     Route: 065
     Dates: start: 2014, end: 201412
  6. DOXYCYCLINE. [Suspect]
     Active Substance: DOXYCYCLINE
     Indication: PLASMODIUM MALARIAE INFECTION
     Dosage: 100 MG, QD
     Route: 065
     Dates: start: 201210
  7. PRIMACIN [Interacting]
     Active Substance: PRIMAQUINE PHOSPHATE
     Indication: PLASMODIUM MALARIAE INFECTION
     Dosage: 30 MG, QD
     Route: 065

REACTIONS (4)
  - Drug interaction [Unknown]
  - Plasmodium vivax infection [Unknown]
  - Malaria [Unknown]
  - Treatment failure [None]

NARRATIVE: CASE EVENT DATE: 201303
